FAERS Safety Report 23830364 (Version 4)
Quarter: 2024Q4

REPORT INFORMATION
  Report Type: Spontaneous
  Country: US (occurrence: US)
  Receive Date: 20240508
  Receipt Date: 20241111
  Transmission Date: 20250115
  Serious: Yes (Other)
  Sender: BRISTOL-MYERS SQUIBB COMPANY
  Company Number: US-BRISTOL-MYERS SQUIBB COMPANY-2024-071294

PATIENT
  Age: 66 Year
  Sex: Female

DRUGS (3)
  1. REVLIMID [Suspect]
     Active Substance: LENALIDOMIDE
     Indication: Plasma cell myeloma
     Route: 048
     Dates: start: 20240422, end: 20241105
  2. REVLIMID [Suspect]
     Active Substance: LENALIDOMIDE
     Indication: Follicular lymphoma
     Dosage: ONE DAILY FOR 21 DAYS, FOLLOWED BY 7-DAY BREAK
     Route: 048
     Dates: start: 20240422
  3. REVLIMID [Suspect]
     Active Substance: LENALIDOMIDE
     Dosage: FREQ: 21
     Route: 048
     Dates: start: 20240422

REACTIONS (6)
  - Fatigue [Unknown]
  - Emotional disorder [Unknown]
  - Feeling abnormal [Unknown]
  - Vision blurred [Unknown]
  - Off label use [Unknown]
  - Plasma cell myeloma recurrent [Unknown]
